FAERS Safety Report 20184031 (Version 1)
Quarter: 2021Q4

REPORT INFORMATION
  Report Type: Spontaneous
  Country: US (occurrence: US)
  Receive Date: 20211214
  Receipt Date: 20211214
  Transmission Date: 20220304
  Serious: No
  Sender: FDA-Public Use
  Company Number: US-ABBVIE-21K-163-3780734-00

PATIENT
  Sex: Male
  Weight: 78.088 kg

DRUGS (3)
  1. IMBRUVICA [Suspect]
     Active Substance: IBRUTINIB
     Indication: Chronic lymphocytic leukaemia
     Route: 048
     Dates: start: 20201202
  2. AMLODIPINE [Suspect]
     Active Substance: AMLODIPINE BESYLATE
     Indication: Hypertension
     Route: 065
  3. ACYCLOVIR [Concomitant]
     Active Substance: ACYCLOVIR
     Indication: Prophylaxis

REACTIONS (6)
  - Hypertension [Not Recovered/Not Resolved]
  - Anxiety [Unknown]
  - Insomnia [Not Recovered/Not Resolved]
  - Contusion [Not Recovered/Not Resolved]
  - Infected cyst [Not Recovered/Not Resolved]
  - Fatigue [Unknown]

NARRATIVE: CASE EVENT DATE: 20210101
